FAERS Safety Report 5155995-8 (Version None)
Quarter: 2006Q4

REPORT INFORMATION
  Report Type: 
  Country: None (occurrence: None)
  Receive Date: 20061122
  Receipt Date: 20061115
  Transmission Date: 20070319
  Serious: Yes (Hospitalization)
  Sender: FDA-Public Use
  Company Number: US-AMGEN-US200401

PATIENT
  Sex: Male

DRUGS (8)
  1. PANITUMUMAB [Suspect]
     Indication: COLORECTAL CANCER
     Route: 042
     Dates: start: 20060802
  2. IRINOTECAN HCL [Concomitant]
     Route: 042
  3. FLUOROURACIL [Concomitant]
     Route: 042
  4. LEUCOVORIN CALCIUM [Concomitant]
     Route: 042
  5. AVASTIN [Concomitant]
     Route: 042
  6. OXYCODONE HCL [Concomitant]
     Route: 065
  7. ZOFRAN [Concomitant]
     Route: 065
  8. OXYCONTIN [Concomitant]
     Route: 065

REACTIONS (1)
  - PULMONARY EMBOLISM [None]
